FAERS Safety Report 6159359-X (Version None)
Quarter: 2009Q2

REPORT INFORMATION
  Report Type: 
  Country: None (occurrence: None)
  Receive Date: 20090417
  Receipt Date: 20090406
  Transmission Date: 20091009
  Serious: Yes (Death, Hospitalization)
  Sender: FDA-Public Use
  Company Number: US-GENENTECH-280540

PATIENT

DRUGS (1)
  1. AVASTIN [Suspect]
     Indication: NON-HODGKIN'S LYMPHOMA
     Dosage: 10 MG/KG, Q14D
     Route: 042
     Dates: start: 20030820, end: 20030820

REACTIONS (2)
  - DISEASE PROGRESSION [None]
  - SUDDEN DEATH [None]
